FAERS Safety Report 17094194 (Version 1)
Quarter: 2019Q4

REPORT INFORMATION
  Report Type: Spontaneous
  Country: ES (occurrence: ES)
  Receive Date: 20191129
  Receipt Date: 20191129
  Transmission Date: 20200122
  Serious: Yes (Life-Threatening, Hospitalization)
  Sender: FDA-Public Use
  Company Number: NVSC2019ES051888

PATIENT
  Age: 47 Year
  Sex: Female

DRUGS (9)
  1. AMOXICILLIN SODIUM,POTASSIUM CLAVULANATE [Suspect]
     Active Substance: AMOXICILLIN\CLAVULANATE POTASSIUM
     Indication: PRIMARY AMYLOIDOSIS
     Dosage: 1 OT, Q8H
     Route: 065
  2. SEPTRIN [Suspect]
     Active Substance: SULFAMETHOXAZOLE\TRIMETHOPRIM
     Indication: PRIMARY AMYLOIDOSIS
     Dosage: 1 OT, Q48H
     Route: 065
  3. ACTOCORTIN (HYDROCORTISONE SODIUM PHOSPHATE) [Suspect]
     Active Substance: HYDROCORTISONE SODIUM PHOSPHATE
     Indication: PRIMARY AMYLOIDOSIS
     Dosage: 20 MG, Q24H
     Route: 065
  4. ACICLOVIR [Suspect]
     Active Substance: ACYCLOVIR
     Indication: PRIMARY AMYLOIDOSIS
     Dosage: 250 MG, Q24H
     Route: 065
  5. DOXYCYCLINE. [Suspect]
     Active Substance: DOXYCYCLINE
     Indication: PRIMARY AMYLOIDOSIS
     Dosage: UNK UNK, QW
     Route: 065
  6. PROPOFOL. [Suspect]
     Active Substance: PROPOFOL
     Indication: ANALGESIC THERAPY
     Dosage: 2 %, UNKNOWN
     Route: 065
  7. VELCADE [Suspect]
     Active Substance: BORTEZOMIB
     Indication: PRIMARY AMYLOIDOSIS
     Dosage: UNK, QW
     Route: 065
  8. CYCLOPHOSPHAMIDE. [Suspect]
     Active Substance: CYCLOPHOSPHAMIDE
     Indication: PRIMARY AMYLOIDOSIS
     Dosage: UNK UNK, QW
     Route: 065
  9. DEXAMETHASONE. [Suspect]
     Active Substance: DEXAMETHASONE
     Indication: PRIMARY AMYLOIDOSIS
     Dosage: UNK
     Route: 065

REACTIONS (7)
  - Pancreatitis [Unknown]
  - Product use in unapproved indication [Unknown]
  - Seizure [Unknown]
  - Off label use [Unknown]
  - Respiratory arrest [Unknown]
  - Biliary colic [Unknown]
  - Hemiplegia [Unknown]
